FAERS Safety Report 5412454-2 (Version None)
Quarter: 2007Q3

REPORT INFORMATION
  Report Type: 
  Country: None (occurrence: None)
  Receive Date: 20070813
  Receipt Date: 20070807
  Transmission Date: 20080115
  Serious: Yes (Other)
  Sender: FDA-Public Use
  Company Number: US-ASTRAZENECA-2007UW19190

PATIENT
  Age: 60 Year
  Sex: Female

DRUGS (5)
  1. SEROQUEL [Suspect]
     Indication: BIPOLAR DISORDER
     Route: 048
  2. BLOOD PRESSURE MEDICATIONS [Concomitant]
  3. BENZODIAZAPINES [Concomitant]
  4. ANTIDEPRESSANT [Concomitant]
  5. CHOLESTEROL MEDICATION [Concomitant]

REACTIONS (4)
  - ALOPECIA [None]
  - ANAEMIA [None]
  - BLOOD ANTIDIURETIC HORMONE [None]
  - HYPOTHYROIDISM [None]
